FAERS Safety Report 7294980-7 (Version None)
Quarter: 2011Q1

REPORT INFORMATION
  Report Type: 
  Country: None (occurrence: None)
  Receive Date: 20110207
  Receipt Date: 20110124
  Transmission Date: 20110831
  Serious: Yes (Disabling, Other)
  Sender: FDA-Public Use
  Company Number: 2011PI004178

PATIENT
  Age: 71 Year
  Sex: Male

DRUGS (4)
  1. BUPIVACAINE (NO PREF. NAME) [Suspect]
     Indication: ANAESTHESIA
     Dosage: 0.5 %; X1; INTH 0.1 %; ; INTH
     Route: 055
  2. FENTANYL [Suspect]
     Indication: ANALGESIC THERAPY
     Dosage: 7.5 UG/ML;  ; INTH
     Route: 055
  3. LIDOCAINE [Suspect]
     Indication: ANAESTHESIA
     Dosage: 2 %; X1; INTH
     Route: 055
  4. EPINEPHRINE [Suspect]
     Indication: ANAESTHESIA
     Dosage: 1: 200,000;X1; INTH
     Route: 055

REACTIONS (3)
  - PERIPHERAL SENSORIMOTOR NEUROPATHY [None]
  - POST PROCEDURAL COMPLICATION [None]
  - COMPARTMENT SYNDROME [None]
